FAERS Safety Report 8940052 (Version 2)
Quarter: 2012Q4

REPORT INFORMATION
  Report Type: 
  Country: US (occurrence: US)
  Receive Date: 20121130
  Receipt Date: 20121210
  Transmission Date: 20130627
  Serious: No
  Sender: FDA-Public Use
  Company Number: US-009507513-1211USA010813

PATIENT
  Age: 62 Year
  Sex: Male
  Weight: 68.27 kg

DRUGS (3)
  1. CLARITIN [Suspect]
     Indication: PRODUCT USED FOR UNKNOWN INDICATION
     Dosage: 10 mg, qd
     Route: 048
     Dates: start: 20120901, end: 20120902
  2. IBUPROFEN [Concomitant]
     Indication: BACK DISORDER
     Dosage: UNK, prn
  3. ACETAMINOPHEN [Concomitant]
     Indication: BACK DISORDER
     Dosage: UNK, Unknown

REACTIONS (1)
  - Drug ineffective [Unknown]
